FAERS Safety Report 9107068 (Version 2)
Quarter: 2013Q1

REPORT INFORMATION
  Report Type: Spontaneous
  Country: US (occurrence: US)
  Receive Date: 20130221
  Receipt Date: 20130322
  Transmission Date: 20140127
  Serious: Yes (Hospitalization)
  Sender: FDA-Public Use
  Company Number: US-ELI_LILLY_AND_COMPANY-US201302004747

PATIENT
  Age: 83 None
  Sex: Female
  Weight: 55.33 kg

DRUGS (11)
  1. FORTEO [Suspect]
     Dosage: 20 UG, QD
     Route: 058
     Dates: start: 20120418
  2. FUROSEMIDE [Concomitant]
  3. LEVOTHYROXINE [Concomitant]
  4. DEXLANSOPRAZOLE [Concomitant]
  5. AMIODARONE [Concomitant]
  6. ASPIRIN [Concomitant]
  7. CADUET [Concomitant]
  8. PERCOCET [Concomitant]
  9. OXYCODONE [Concomitant]
  10. VITAMIN B12 [Concomitant]
  11. VITAMIN D [Concomitant]

REACTIONS (7)
  - Chest pain [Unknown]
  - Oedema peripheral [Unknown]
  - Anxiety [Unknown]
  - Pharyngeal disorder [Unknown]
  - Malaise [Unknown]
  - Fall [Unknown]
  - Dyspnoea [Unknown]
